FAERS Safety Report 7490710-4 (Version None)
Quarter: 2011Q2

REPORT INFORMATION
  Report Type: 
  Country: None (occurrence: None)
  Receive Date: 20110519
  Receipt Date: 20110512
  Transmission Date: 20111010
  Serious: Yes (Other)
  Sender: FDA-Public Use
  Company Number: US-SANOFI-AVENTIS-2011SA030416

PATIENT
  Age: 56 Year
  Sex: Female

DRUGS (4)
  1. AMBIEN CR [Suspect]
     Indication: INSOMNIA
     Route: 048
     Dates: start: 20070101
  2. ZOLPIDEM TARTRATE [Suspect]
     Indication: INSOMNIA
     Route: 048
     Dates: start: 20110321
  3. PANTOPRAZOLE [Concomitant]
  4. GABAPENTIN [Concomitant]
     Indication: TRIGEMINAL NEURALGIA

REACTIONS (5)
  - DRUG INEFFECTIVE [None]
  - PRODUCT SUBSTITUTION ISSUE [None]
  - BRAIN NEOPLASM [None]
  - SLEEP APNOEA SYNDROME [None]
  - ABDOMINAL DISCOMFORT [None]
